FAERS Safety Report 13256701 (Version 1)
Quarter: 2017Q1

REPORT INFORMATION
  Report Type: Spontaneous
  Country: JP (occurrence: JP)
  Receive Date: 20170221
  Receipt Date: 20170221
  Transmission Date: 20170428
  Serious: Yes (Hospitalization)
  Sender: FDA-Public Use
  Company Number: JP-009507513-1702JPN008860

PATIENT
  Age: 90 Year
  Sex: Female

DRUGS (7)
  1. REFLEX [Suspect]
     Active Substance: MIRTAZAPINE
     Route: 048
  2. AZELNIDIPINE [Concomitant]
     Active Substance: AZELNIDIPINE
     Route: 048
  3. RAMELTEON [Concomitant]
     Active Substance: RAMELTEON
     Route: 048
  4. ASPIRIN. [Concomitant]
     Active Substance: ASPIRIN
     Route: 048
  5. TICLOPIDINE HYDROCHLORIDE. [Concomitant]
     Active Substance: TICLOPIDINE HYDROCHLORIDE
     Route: 048
  6. RABEPRAZOLE SODIUM. [Concomitant]
     Active Substance: RABEPRAZOLE SODIUM
     Route: 048
  7. NICORANDIL [Concomitant]
     Active Substance: NICORANDIL
     Route: 048

REACTIONS (2)
  - Pneumonia aspiration [Recovering/Resolving]
  - Decreased appetite [Unknown]

NARRATIVE: CASE EVENT DATE: 2014
